FAERS Safety Report 11054109 (Version 1)
Quarter: 2015Q2

REPORT INFORMATION
  Report Type: Spontaneous
  Country: US (occurrence: US)
  Receive Date: 20150422
  Receipt Date: 20150422
  Transmission Date: 20150821
  Serious: No
  Sender: FDA-Public Use
  Company Number: US-TEVA-534441USA

PATIENT
  Sex: Male

DRUGS (1)
  1. LOSARTAN [Suspect]
     Active Substance: LOSARTAN
     Route: 065

REACTIONS (4)
  - Swelling [Unknown]
  - Gout [Unknown]
  - Musculoskeletal discomfort [Unknown]
  - Heart rate increased [Recovered/Resolved]
